FAERS Safety Report 19435348 (Version 1)
Quarter: 2021Q2

REPORT INFORMATION
  Report Type: Spontaneous
  Country: JP (occurrence: JP)
  Receive Date: 20210617
  Receipt Date: 20210617
  Transmission Date: 20210717
  Serious: Yes (Hospitalization)
  Sender: FDA-Public Use
  Company Number: JP-JNJFOC-20210629168

PATIENT
  Age: 76 Year
  Sex: Female
  Weight: 41.3 kg

DRUGS (17)
  1. MACITENTAN [Suspect]
     Active Substance: MACITENTAN
     Indication: PRODUCT USED FOR UNKNOWN INDICATION
     Route: 065
  2. DIART [Concomitant]
     Active Substance: AZOSEMIDE
  3. GLUBES [Concomitant]
     Active Substance: MITIGLINIDE CALCIUM HYDRATE\VOGLIBOSE
  4. TOLVAPTAN [Concomitant]
     Active Substance: TOLVAPTAN
  5. REVATIO [Suspect]
     Active Substance: SILDENAFIL CITRATE
     Indication: PRODUCT USED FOR UNKNOWN INDICATION
     Route: 048
  6. SPIRONOLACTONE. [Suspect]
     Active Substance: SPIRONOLACTONE
     Indication: PRODUCT USED FOR UNKNOWN INDICATION
  7. FUROSEMIDE. [Concomitant]
     Active Substance: FUROSEMIDE
  8. FEBURIC [Concomitant]
     Active Substance: FEBUXOSTAT
  9. TRAZENTA [Concomitant]
     Active Substance: LINAGLIPTIN
  10. ENALAPRIL [Concomitant]
     Active Substance: ENALAPRIL
  11. LIXIANA [Concomitant]
     Active Substance: EDOXABAN TOSYLATE
  12. RYZODEG 70/30 [Concomitant]
     Active Substance: INSULIN ASPART\INSULIN DEGLUDEC
  13. BOSENTAN. [Suspect]
     Active Substance: BOSENTAN
     Indication: PULMONARY ARTERIAL HYPERTENSION
     Route: 065
     Dates: start: 2018
  14. FERROUS [IRON] [Concomitant]
     Active Substance: IRON
  15. TAKECAB [Concomitant]
     Active Substance: VONOPRAZAN FUMARATE
  16. PITAVASTATIN. [Concomitant]
     Active Substance: PITAVASTATIN CALCIUM
  17. BISOPROLOL [Concomitant]
     Active Substance: BISOPROLOL

REACTIONS (13)
  - Cardiac failure acute [Unknown]
  - Drug level increased [Unknown]
  - Pyelonephritis [Unknown]
  - Inflammation [Unknown]
  - Complex regional pain syndrome [Unknown]
  - Anaemia [Unknown]
  - Back pain [Unknown]
  - Infective spondylitis [Unknown]
  - Muscle abscess [Unknown]
  - Atrial fibrillation [Unknown]
  - Chronic kidney disease [Unknown]
  - Cardiac failure congestive [Unknown]
  - Arthralgia [Unknown]
